FAERS Safety Report 9485857 (Version 1)
Quarter: 2013Q3

REPORT INFORMATION
  Report Type: Spontaneous
  Country: SE (occurrence: SE)
  Receive Date: 20130829
  Receipt Date: 20130829
  Transmission Date: 20140515
  Serious: Yes (Hospitalization)
  Sender: FDA-Public Use
  Company Number: PHHY2013SE093639

PATIENT
  Age: 83 Year
  Sex: Female

DRUGS (19)
  1. ZOMETA [Suspect]
     Indication: BREAST CANCER
     Dosage: UNK UKN, UNK
     Dates: end: 20130424
  2. DALACIN [Concomitant]
  3. CITALOPRAM ACTAVIS//CITALOPRAM HYDROBROMIDE [Concomitant]
  4. OMEPRAZOL [Concomitant]
  5. ABSTRAL [Concomitant]
  6. ANASTRAZOL RONTAG [Concomitant]
  7. XGEVA [Concomitant]
  8. INOTYOL [Concomitant]
  9. BETAPRED [Concomitant]
  10. KALEORID [Concomitant]
  11. FURIX [Concomitant]
  12. MORFIN [Concomitant]
  13. OXASCAND [Concomitant]
  14. KETOGAN NOVUM [Concomitant]
  15. MOVICOL [Concomitant]
  16. DENTAN [Concomitant]
  17. NOVORAPID [Concomitant]
  18. CILAXORAL [Concomitant]
  19. METADON [Concomitant]

REACTIONS (2)
  - Abscess [Not Recovered/Not Resolved]
  - Osteonecrosis [Not Recovered/Not Resolved]
